FAERS Safety Report 4329760-5 (Version None)
Quarter: 2004Q2

REPORT INFORMATION
  Report Type: 
  Country: None (occurrence: None)
  Receive Date: 20040401
  Receipt Date: 20040324
  Transmission Date: 20050107
  Serious: Yes (Death, Hospitalization)
  Sender: FDA-Public Use
  Company Number: FR-GLAXOSMITHKLINE-B0327926A

PATIENT
  Age: 44 Year
  Sex: Male

DRUGS (18)
  1. CLAVENTIN [Suspect]
     Indication: LUNG DISORDER
     Dosage: 15G PER DAY
     Route: 042
     Dates: start: 20040121, end: 20040212
  2. NEORAL [Suspect]
     Indication: PROPHYLAXIS AGAINST TRANSPLANT REJECTION
     Dosage: 100MG PER DAY
     Route: 048
     Dates: start: 20031219, end: 20040222
  3. OFLOCET [Suspect]
     Dosage: 400MG PER DAY
     Route: 042
     Dates: start: 20040129, end: 20040207
  4. VFEND [Suspect]
     Dosage: 400MG PER DAY
     Route: 042
     Dates: start: 20040105, end: 20040210
  5. CYMEVAN [Suspect]
     Dosage: 900MG PER DAY
     Route: 042
     Dates: start: 20040121, end: 20040207
  6. CANCIDAS [Suspect]
     Dosage: 50MG PER DAY
     Route: 042
     Dates: start: 20040121, end: 20040207
  7. FLUDARABINE PHOSPHATE [Concomitant]
     Route: 065
  8. MISULBAN [Concomitant]
     Route: 065
  9. TAZOCILLINE [Concomitant]
     Route: 065
  10. ORACILLINE [Concomitant]
     Route: 065
  11. TRIFLUCAN [Concomitant]
     Route: 065
  12. VALACYCLOVIR HCL [Concomitant]
     Route: 065
  13. AMIKACIN [Concomitant]
     Route: 065
     Dates: end: 20040209
  14. VANCOMYCIN [Concomitant]
     Dosage: 2G PER DAY
     Route: 065
     Dates: start: 20040129, end: 20040214
  15. AMBISOME [Concomitant]
     Route: 065
     Dates: start: 20040204
  16. PIPERACILLINE [Concomitant]
     Dosage: 12G PER DAY
     Route: 065
     Dates: start: 20040212, end: 20040223
  17. ANTILYMPHOCYTE SERUM [Concomitant]
     Route: 065
  18. THALOMID [Concomitant]
     Route: 065
     Dates: start: 20011001, end: 20031101

REACTIONS (13)
  - ACIDOSIS [None]
  - AGGRESSION [None]
  - AGITATION [None]
  - CONFUSIONAL STATE [None]
  - DEPRESSED LEVEL OF CONSCIOUSNESS [None]
  - DISORIENTATION [None]
  - ENCEPHALOPATHY [None]
  - GENERAL PHYSICAL HEALTH DETERIORATION [None]
  - MUSCLE RIGIDITY [None]
  - MYOCLONUS [None]
  - RENAL FAILURE [None]
  - TORTICOLLIS [None]
  - TREMOR [None]
